FAERS Safety Report 10925597 (Version 2)
Quarter: 2015Q2

REPORT INFORMATION
  Report Type: Spontaneous
  Country: CO (occurrence: CO)
  Receive Date: 20150318
  Receipt Date: 20150520
  Transmission Date: 20150821
  Serious: Yes (Other)
  Sender: FDA-Public Use
  Company Number: CO-PFIZER INC-2015092372

PATIENT
  Age: 12 Year
  Sex: Male

DRUGS (1)
  1. GENOTROPIN [Suspect]
     Active Substance: SOMATROPIN
     Dosage: 0.8 MG, DAILY
     Route: 058
     Dates: start: 20150305, end: 20150310

REACTIONS (10)
  - Hand deformity [Recovered/Resolved]
  - Limb discomfort [Recovered/Resolved]
  - Headache [Recovered/Resolved]
  - Pulmonary pain [Recovered/Resolved]
  - Vision blurred [Recovered/Resolved]
  - Discomfort [Recovered/Resolved]
  - Finger deformity [Recovered/Resolved]
  - Blood glucose increased [Recovered/Resolved]
  - Vomiting [Recovered/Resolved]
  - Back pain [Recovered/Resolved]

NARRATIVE: CASE EVENT DATE: 201503
